FAERS Safety Report 23546994 (Version 1)
Quarter: 2024Q1

REPORT INFORMATION
  Report Type: Spontaneous
  Country: US (occurrence: US)
  Receive Date: 20240221
  Receipt Date: 20240221
  Transmission Date: 20240410
  Serious: No
  Sender: FDA-Public Use
  Company Number: US-BIOVITRUM-2024-US-002852

PATIENT
  Age: 12 Month
  Sex: Male
  Weight: 9.43 kg

DRUGS (9)
  1. SYNAGIS [Suspect]
     Active Substance: PALIVIZUMAB
     Indication: Illness
     Dosage: ONCE A MONTH
     Route: 030
     Dates: start: 20230215
  2. SYNAGIS [Suspect]
     Active Substance: PALIVIZUMAB
     Indication: Mitral valve incompetence
  3. SYNAGIS [Suspect]
     Active Substance: PALIVIZUMAB
     Indication: Premature baby
  4. PROBIOTIC 100 B [Concomitant]
     Indication: Product used for unknown indication
  5. IRON\VITAMINS [Concomitant]
     Active Substance: IRON\VITAMINS
     Indication: Product used for unknown indication
  6. VITAMIN D3 [Concomitant]
     Active Substance: CHOLECALCIFEROL
     Indication: Product used for unknown indication
     Dosage: 3 12.5MCG/5LIQUID
  7. ASPIRIN [Concomitant]
     Active Substance: ASPIRIN
     Indication: Product used for unknown indication
     Dosage: 3 12.5MCG/5LIQUID
  8. SPIRONOLACTONE [Concomitant]
     Active Substance: SPIRONOLACTONE
     Indication: Product used for unknown indication
     Dosage: 3 12.5MCG/5LIQUID
  9. CARVEDILOL [Concomitant]
     Active Substance: CARVEDILOL
     Indication: Product used for unknown indication
     Dosage: 3 12.5MCG/5LIQUID

REACTIONS (1)
  - Hypersensitivity [Unknown]
